FAERS Safety Report 17146920 (Version 10)
Quarter: 2020Q2

REPORT INFORMATION
  Report Type: Spontaneous
  Country: US (occurrence: US)
  Receive Date: 20191212
  Receipt Date: 20200417
  Transmission Date: 20200713
  Serious: Yes (Other)
  Sender: FDA-Public Use
  Company Number: US-GILEAD-2019-0442198

PATIENT
  Age: 36 Year
  Sex: Female

DRUGS (10)
  1. METHAMPHETAMINE [METAMFETAMINE HYDROCHLORIDE] [Concomitant]
     Active Substance: METHAMPHETAMINE HYDROCHLORIDE
  2. ALDACTONE [POTASSIUM CANRENOATE] [Concomitant]
     Active Substance: CANRENOATE POTASSIUM
  3. AMBRISENTAN [Suspect]
     Active Substance: AMBRISENTAN
     Indication: PULMONARY HYPERTENSION
     Dosage: 10 MG, QD
     Route: 065
     Dates: start: 201805
  4. DOXYCYCLINE. [Concomitant]
     Active Substance: DOXYCYCLINE
  5. GABAPENTIN. [Concomitant]
     Active Substance: GABAPENTIN
  6. AMBRISENTAN [Suspect]
     Active Substance: AMBRISENTAN
     Indication: DRUG ABUSE
  7. POTASSIUM [Concomitant]
     Active Substance: POTASSIUM
  8. TADAFIL [Concomitant]
     Active Substance: TADALAFIL
  9. UPTRAVI [Concomitant]
     Active Substance: SELEXIPAG
  10. LASIX [Concomitant]
     Active Substance: FUROSEMIDE

REACTIONS (8)
  - Pregnancy [Recovered/Resolved]
  - Pain [Unknown]
  - Hypokalaemia [Unknown]
  - Insomnia [Unknown]
  - Anxiety [Unknown]
  - Abortion induced [Recovered/Resolved]
  - Dyspnoea exertional [Not Recovered/Not Resolved]
  - Headache [Unknown]

NARRATIVE: CASE EVENT DATE: 20181018
